FAERS Safety Report 5309304-1 (Version None)
Quarter: 2007Q2

REPORT INFORMATION
  Report Type: 
  Country: None (occurrence: None)
  Receive Date: 20070424
  Receipt Date: 20070424
  Transmission Date: 20071010
  Serious: Yes (Hospitalization)
  Sender: FDA-Public Use
  Company Number: None

PATIENT
  Age: 73 Year
  Sex: Male
  Weight: 74.1 kg

DRUGS (9)
  1. BEVACIZUMAB [Suspect]
     Indication: COLON CANCER METASTATIC
     Dosage: 7.5MG/KG Q21D IV
     Route: 042
     Dates: start: 20070411
  2. IRINOTECAN HCL [Concomitant]
  3. CAPECITABINE [Concomitant]
  4. FERROUS SULFATE TAB [Concomitant]
  5. METFORMIN HCL [Concomitant]
  6. GLIPIZIDE [Concomitant]
  7. DIOVAN [Concomitant]
  8. TOPROL-XL [Concomitant]
  9. ARANESP [Concomitant]

REACTIONS (2)
  - DUODENAL ULCER PERFORATION [None]
  - HYPOTENSION [None]
